FAERS Safety Report 12506928 (Version 1)
Quarter: 2016Q2

REPORT INFORMATION
  Report Type: Spontaneous
  Country: FR (occurrence: FR)
  Receive Date: 20160629
  Receipt Date: 20160629
  Transmission Date: 20160815
  Serious: Yes (Other)
  Sender: FDA-Public Use
  Company Number: FR-NOVEN PHARMACEUTICALS, INC.-FR2016001651

PATIENT

DRUGS (4)
  1. BACLOFEN. [Interacting]
     Active Substance: BACLOFEN
     Indication: ALCOHOL DETOXIFICATION
     Dosage: 150 MG, QD
     Route: 048
  2. ALPRAZOLAM. [Concomitant]
     Active Substance: ALPRAZOLAM
  3. PAROXETINE. [Suspect]
     Active Substance: PAROXETINE
     Indication: ANTIDEPRESSANT THERAPY
     Dosage: UNK, UNKNOWN
     Route: 065
  4. ZOLPIDEM [Concomitant]
     Active Substance: ZOLPIDEM\ZOLPIDEM TARTRATE

REACTIONS (2)
  - Sleep apnoea syndrome [Recovering/Resolving]
  - Drug interaction [Unknown]
